FAERS Safety Report 11515126 (Version 1)
Quarter: 2015Q3

REPORT INFORMATION
  Report Type: Spontaneous
  Country: DE (occurrence: DE)
  Receive Date: 20150916
  Receipt Date: 20150916
  Transmission Date: 20151125
  Serious: Yes (Hospitalization, Other)
  Sender: FDA-Public Use
  Company Number: PHHY2015DE108756

PATIENT
  Age: 72 Year
  Sex: Male

DRUGS (2)
  1. ACLASTA [Suspect]
     Active Substance: ZOLEDRONIC ACID
     Indication: PLASMA CELL MYELOMA
     Route: 065
     Dates: end: 2012
  2. ZOMETA [Suspect]
     Active Substance: ZOLEDRONIC ACID
     Indication: PLASMA CELL MYELOMA
     Route: 065
     Dates: start: 201201, end: 201209

REACTIONS (20)
  - Malignant neoplasm progression [Unknown]
  - Brain abscess [Not Recovered/Not Resolved]
  - Asthma [Unknown]
  - Nephropathy [Unknown]
  - Seizure [Unknown]
  - Deep vein thrombosis [Unknown]
  - Concomitant disease progression [Unknown]
  - Recurrent cancer [Unknown]
  - Renal tubular atrophy [Unknown]
  - Cerebral toxoplasmosis [Unknown]
  - Plasma cell myeloma [Unknown]
  - Renal tubular acidosis [Unknown]
  - Osteolysis [Unknown]
  - Pneumonia [Unknown]
  - Leukopenia [Unknown]
  - Renal failure [Unknown]
  - Kidney fibrosis [Unknown]
  - Device related sepsis [Unknown]
  - Streptococcal sepsis [Unknown]
  - Pulmonary embolism [Unknown]

NARRATIVE: CASE EVENT DATE: 201201
